FAERS Safety Report 9253279 (Version 2)
Quarter: 2013Q2

REPORT INFORMATION
  Report Type: Report from Study
  Country: US (occurrence: US)
  Receive Date: 20130424
  Receipt Date: 20130502
  Transmission Date: 20140414
  Serious: No
  Sender: FDA-Public Use
  Company Number: US-US-EMD SERONO, INC.-7206583

PATIENT
  Age: 52 Year
  Sex: Female
  Weight: 105 kg

DRUGS (2)
  1. REBIF [Suspect]
     Indication: MULTIPLE SCLEROSIS
     Route: 058
     Dates: start: 20120601
  2. REBIF [Suspect]
     Route: 058
     Dates: start: 201210

REACTIONS (2)
  - Upper respiratory tract infection [Unknown]
  - Hepatic enzyme increased [Unknown]
